FAERS Safety Report 5551523-3 (Version None)
Quarter: 2007Q4

REPORT INFORMATION
  Report Type: 
  Country: None (occurrence: None)
  Receive Date: 20071212
  Receipt Date: 20071129
  Transmission Date: 20080405
  Serious: Yes (Hospitalization)
  Sender: FDA-Public Use
  Company Number: DE-GENENTECH-252427

PATIENT
  Sex: Female
  Weight: 76 kg

DRUGS (2)
  1. BEVACIZUMAB [Suspect]
     Indication: BREAST CANCER
     Dosage: 760 MG, UNK
     Route: 042
     Dates: start: 20071121
  2. TAXOL [Suspect]
     Indication: BREAST CANCER
     Dosage: 161 MG, UNK
     Route: 042
     Dates: start: 20071121

REACTIONS (4)
  - FATIGUE [None]
  - HEADACHE [None]
  - PYREXIA [None]
  - VOMITING [None]
